FAERS Safety Report 8787562 (Version 1)
Quarter: 2012Q4

REPORT INFORMATION
  Report Type: 
  Country: US (occurrence: US)
  Receive Date: 20120914
  Receipt Date: 20120914
  Transmission Date: 20130627
  Serious: Yes (Other)
  Sender: FDA-Public Use
  Company Number: US-ROCHE-1105628

PATIENT
  Sex: Female

DRUGS (7)
  1. TARCEVA [Suspect]
     Indication: PANCREATIC CARCINOMA
     Route: 065
  2. XELODA [Suspect]
     Indication: PANCREATIC CARCINOMA
     Route: 065
     Dates: start: 200806, end: 20090108
  3. CISPLATIN [Concomitant]
     Route: 065
     Dates: start: 200802, end: 200806
  4. CISPLATIN [Concomitant]
     Route: 065
     Dates: start: 20080923, end: 20081105
  5. 5-FLUOROURACIL [Concomitant]
  6. GEMZAR [Concomitant]
     Route: 065
     Dates: start: 200802, end: 200806
  7. GEMZAR [Concomitant]
     Route: 065
     Dates: start: 20080923, end: 20081105

REACTIONS (2)
  - Hepatic mass [Unknown]
  - Intestinal obstruction [Unknown]
